FAERS Safety Report 9518658 (Version 4)
Quarter: 2014Q3

REPORT INFORMATION
  Report Type: Report from Study
  Country: BR (occurrence: BR)
  Receive Date: 20130912
  Receipt Date: 20140819
  Transmission Date: 20150326
  Serious: Yes (Hospitalization, Other)
  Sender: FDA-Public Use
  Company Number: PHHY2013BR041835

PATIENT
  Sex: Female
  Weight: 83 kg

DRUGS (6)
  1. SANDOSTATIN LAR DEPOT [Suspect]
     Active Substance: OCTREOTIDE ACETATE
     Indication: PITUITARY TUMOUR
     Dosage: 30 MG, QMO
     Route: 030
     Dates: start: 200904
  2. ZOMETA [Suspect]
     Active Substance: ZOLEDRONIC ACID
     Indication: METASTASIS
     Dosage: UNK UKN, UNK
  3. AREDIA [Suspect]
     Active Substance: PAMIDRONATE DISODIUM
     Indication: METASTASIS
     Dosage: UNK UKN, UNK
  4. SANDOSTATIN LAR DEPOT [Suspect]
     Active Substance: OCTREOTIDE ACETATE
     Indication: ACROMEGALY
     Dosage: UNK UKN, UNK
     Dates: start: 2008
  5. SANDOSTATIN LAR DEPOT [Suspect]
     Active Substance: OCTREOTIDE ACETATE
     Dosage: 1 DF, EVERY 28 DAYS
     Route: 030
  6. XELODA [Suspect]
     Active Substance: CAPECITABINE
     Indication: METASTASES TO BONE
     Dosage: 8 DF, QD (4 TABLETS IN THE MORNING AND 4 AFTER DINNER)

REACTIONS (18)
  - Arthralgia [Unknown]
  - Urinary incontinence [Recovering/Resolving]
  - Depressed mood [Not Recovered/Not Resolved]
  - Pain [Unknown]
  - Smooth muscle cell neoplasm [Unknown]
  - Weight increased [Unknown]
  - Diabetes insipidus [Recovering/Resolving]
  - Metastasis [Unknown]
  - Mass [Unknown]
  - Erythema [Recovering/Resolving]
  - Mastitis [Recovering/Resolving]
  - Dermatitis [Recovering/Resolving]
  - Metastases to bone [Recovering/Resolving]
  - Breast cancer [Recovering/Resolving]
  - Osteoarthritis [Unknown]
  - Pain in extremity [Recovered/Resolved]
  - Infection [Recovering/Resolving]
  - Gait disturbance [Unknown]

NARRATIVE: CASE EVENT DATE: 2011
